FAERS Safety Report 16384776 (Version 1)
Quarter: 2019Q2

REPORT INFORMATION
  Report Type: Spontaneous
  Country: US (occurrence: US)
  Receive Date: 20190426
  Receipt Date: 20190426
  Transmission Date: 20190711
  Serious: Yes (Hospitalization)
  Sender: FDA-Public Use
  Company Number: None

PATIENT
  Age: 61 Year
  Sex: Male
  Weight: 58 kg

DRUGS (5)
  1. DEXAMETHASONE. [Concomitant]
     Active Substance: DEXAMETHASONE
  2. NUTRITIONAL SUPLEMENTS [Concomitant]
  3. AMLODIPINE [Concomitant]
     Active Substance: AMLODIPINE BESYLATE
  4. KEYTRUDA [Suspect]
     Active Substance: PEMBROLIZUMAB
     Indication: NON-SMALL CELL LUNG CANCER
     Dosage: ?          QUANTITY:8 ML MILLILITRE(S);OTHER FREQUENCY:EVERY 21 DAYS;?
     Route: 042
     Dates: start: 20181120
  5. ONDANSETRON [Concomitant]
     Active Substance: ONDANSETRON

REACTIONS (11)
  - Chest pain [None]
  - Dyspnoea [None]
  - Pneumonitis [None]
  - Toxicity to various agents [None]
  - Microvascular coronary artery disease [None]
  - Hypokinesia [None]
  - Hypertensive heart disease [None]
  - Rectal haemorrhage [None]
  - Dyspnoea exertional [None]
  - Heart rate decreased [None]
  - Cough [None]

NARRATIVE: CASE EVENT DATE: 20190406
